FAERS Safety Report 15340594 (Version 3)
Quarter: 2018Q3

REPORT INFORMATION
  Report Type: Report from Study
  Country: US (occurrence: US)
  Receive Date: 20180831
  Receipt Date: 20180919
  Transmission Date: 20181010
  Serious: Yes (Hospitalization)
  Sender: FDA-Public Use
  Company Number: US-ACTELION-A-US2018-167393

PATIENT
  Age: 53 Year
  Sex: Female
  Weight: 129.71 kg

DRUGS (9)
  1. UPTRAVI [Suspect]
     Active Substance: SELEXIPAG
     Indication: PULMONARY HYPERTENSION
     Dosage: 800MCG QAM, 600MCG QPM
     Route: 048
  2. UPTRAVI [Suspect]
     Active Substance: SELEXIPAG
     Dosage: 1000 MCG, BID
     Route: 048
  3. REMODULIN [Suspect]
     Active Substance: TREPROSTINIL
     Dosage: 0.006 UG/KG
     Route: 058
     Dates: start: 20180822
  4. UPTRAVI [Suspect]
     Active Substance: SELEXIPAG
     Dosage: 800 MCG, BID
     Route: 048
  5. UPTRAVI [Suspect]
     Active Substance: SELEXIPAG
     Dosage: 400 MCG, BID
     Route: 048
  6. OPSUMIT [Concomitant]
     Active Substance: MACITENTAN
     Indication: PULMONARY HYPERTENSION
     Route: 048
  7. REMODULIN [Suspect]
     Active Substance: TREPROSTINIL
     Indication: PULMONARY HYPERTENSION
     Dosage: 0.004 UG/KG
     Route: 058
     Dates: start: 20180817
  8. REMODULIN [Suspect]
     Active Substance: TREPROSTINIL
     Dosage: 0.0025 UG/KG
     Route: 058
     Dates: start: 201808
  9. SILDENAFIL. [Concomitant]
     Active Substance: SILDENAFIL

REACTIONS (20)
  - Nausea [Unknown]
  - Infusion site pain [Not Recovered/Not Resolved]
  - Back pain [Unknown]
  - Vomiting [Unknown]
  - Pulmonary arterial hypertension [Unknown]
  - Abdominal pain [Unknown]
  - Dizziness [Unknown]
  - Muscle spasms [Unknown]
  - Flushing [Unknown]
  - Sleep disorder [Unknown]
  - Diarrhoea [Not Recovered/Not Resolved]
  - Disease progression [Unknown]
  - Drug dose omission [Unknown]
  - Umbilical erythema [Unknown]
  - Heart rate increased [Recovered/Resolved]
  - Abdominal discomfort [Unknown]
  - Headache [Not Recovered/Not Resolved]
  - Palpitations [Recovered/Resolved]
  - Myalgia [Unknown]
  - Pain [Unknown]

NARRATIVE: CASE EVENT DATE: 20180821
